FAERS Safety Report 20053181 (Version 1)
Quarter: 2021Q4

REPORT INFORMATION
  Report Type: Spontaneous
  Country: US (occurrence: None)
  Receive Date: 20211109
  Receipt Date: 20211109
  Transmission Date: 20220303
  Serious: No
  Sender: FDA-Public Use
  Company Number: None

PATIENT
  Age: 71 Year
  Sex: Male
  Weight: 96.62 kg

DRUGS (2)
  1. DOXYCYCLINE [Suspect]
     Active Substance: DOXYCYCLINE
     Indication: Localised infection
     Dosage: FREQUENCY : TOTAL;?
     Route: 048
     Dates: start: 20211012, end: 20211014
  2. Equate Complete Multivitamin (adults 50+) [Concomitant]

REACTIONS (8)
  - Mental disorder [None]
  - Ocular discomfort [None]
  - Skin burning sensation [None]
  - Vomiting [None]
  - Vision blurred [None]
  - Feeling abnormal [None]
  - Impaired work ability [None]
  - Therapy interrupted [None]

NARRATIVE: CASE EVENT DATE: 20211012
